FAERS Safety Report 7816940-7 (Version None)
Quarter: 2011Q4

REPORT INFORMATION
  Report Type: 
  Country: None (occurrence: None)
  Receive Date: 20111017
  Receipt Date: 20111010
  Transmission Date: 20120403
  Serious: Yes (Hospitalization)
  Sender: FDA-Public Use
  Company Number: US-SANOFI-AVENTIS-2011SA046533

PATIENT
  Age: 49 Year
  Sex: Male

DRUGS (18)
  1. DOCETAXEL [Suspect]
     Route: 041
     Dates: start: 20110707, end: 20110707
  2. DILAUDID [Concomitant]
     Indication: PAIN
     Route: 048
  3. DOCETAXEL [Suspect]
     Indication: HEAD AND NECK CANCER
     Route: 041
     Dates: start: 20110412, end: 20110412
  4. CISPLATIN [Suspect]
     Indication: HEAD AND NECK CANCER
     Route: 041
     Dates: start: 20110412, end: 20110412
  5. DEXAMETHASONE [Concomitant]
     Indication: VOMITING
     Dosage: START 12H AFTER CHEMO X 3 DAYS
     Route: 048
  6. SENNA [Concomitant]
     Indication: CONSTIPATION
     Route: 048
  7. ERLOTINIB HYDROCHLORIDE [Suspect]
     Route: 048
     Dates: start: 20110412, end: 20110502
  8. PROCHLORPERAZINE [Concomitant]
     Indication: NAUSEA
     Dosage: EVERY 6 HOURS AS NEEDED
     Route: 048
  9. DIPHENHYDRAMINE HCL [Concomitant]
     Dosage: DOSE:2 TEASPOON(S)
     Route: 048
  10. ALL OTHER THERAPEUTIC PRODUCTS [Concomitant]
     Dosage: EVERY 4 HOURS AS NEEDED
  11. HYCODAN /CAN/ [Concomitant]
     Indication: COUGH
     Dosage: TWICE DAILY AS NEEDED
     Route: 048
  12. ONDANSETRON [Concomitant]
     Indication: NAUSEA
     Dosage: START 12 HR AFTER CHEMO X 4 DAYS THEN Q6-8H AS NEEDED
     Route: 048
  13. ONDANSETRON [Concomitant]
     Indication: VOMITING
     Dosage: START 12 HR AFTER CHEMO X 4 DAYS THEN Q6-8H AS NEEDED
     Route: 048
  14. PROCHLORPERAZINE [Concomitant]
     Indication: VOMITING
     Dosage: EVERY 6 HOURS AS NEEDED
     Route: 048
  15. CISPLATIN [Suspect]
     Route: 041
     Dates: start: 20110707, end: 20110707
  16. ERLOTINIB HYDROCHLORIDE [Suspect]
     Indication: HEAD AND NECK CANCER
     Route: 048
     Dates: start: 20110503, end: 20110706
  17. DEXAMETHASONE [Concomitant]
     Indication: NAUSEA
     Dosage: START 12H AFTER CHEMO X 3 DAYS
     Route: 048
  18. DILAUDID [Concomitant]
     Route: 048

REACTIONS (5)
  - VOMITING [None]
  - HYPONATRAEMIA [None]
  - DIARRHOEA [None]
  - NAUSEA [None]
  - DEHYDRATION [None]
